FAERS Safety Report 7200710-7 (Version None)
Quarter: 2010Q4

REPORT INFORMATION
  Report Type: 
  Country: None (occurrence: None)
  Receive Date: 20101228
  Receipt Date: 20101216
  Transmission Date: 20110411
  Serious: Yes (Other)
  Sender: FDA-Public Use
  Company Number: GB-TEVA-260017ISR

PATIENT
  Age: 69 Year
  Sex: Male

DRUGS (12)
  1. BISOPROLOL [Suspect]
     Indication: BLOOD PRESSURE
  2. RAMIPRIL [Interacting]
     Indication: BLOOD PRESSURE
  3. MELOXICAM [Interacting]
     Indication: PAIN
     Dates: start: 20100916, end: 20100918
  4. ASPIRIN [Interacting]
     Indication: MYOCARDIAL INFARCTION
  5. ASPIRIN [Interacting]
     Indication: CARDIAC ARREST
  6. SERETIDE [Concomitant]
  7. ISOSORBIDE DINITRATE [Concomitant]
  8. OMEPRAZOLE [Concomitant]
  9. QUININE [Concomitant]
  10. TIOTROPIUM [Concomitant]
     Route: 055
  11. SALBUTAMOL [Concomitant]
     Route: 055
  12. STEROID [Concomitant]
     Indication: PLEURISY

REACTIONS (8)
  - CONFUSIONAL STATE [None]
  - DELIRIUM [None]
  - DIARRHOEA [None]
  - DRUG INTERACTION [None]
  - EYE ROLLING [None]
  - GAIT DISTURBANCE [None]
  - HALLUCINATION [None]
  - URINE COLOUR ABNORMAL [None]
